FAERS Safety Report 11239644 (Version 1)
Quarter: 2015Q3

REPORT INFORMATION
  Report Type: Spontaneous
  Country: US (occurrence: None)
  Receive Date: 20150701
  Receipt Date: 20150701
  Transmission Date: 20151125
  Serious: Yes (Life-Threatening, Hospitalization)
  Sender: FDA-Public Use
  Company Number: None

PATIENT
  Age: 52 Year
  Sex: Female
  Weight: 39.01 kg

DRUGS (9)
  1. OPIUM TINCTURE [Concomitant]
     Active Substance: OPIUM TINCTURE
  2. TURMERIC [Concomitant]
     Active Substance: TURMERIC
  3. CALCIUM WITH VIT D (CITRACAL) [Concomitant]
  4. POTASSIUM [Concomitant]
     Active Substance: POTASSIUM
  5. PENTASA [Concomitant]
     Active Substance: MESALAMINE
  6. MG [Concomitant]
     Active Substance: MAGNESIUM
  7. GLUTAMINE [Concomitant]
     Active Substance: GLUTAMINE
  8. HUMIRA [Suspect]
     Active Substance: ADALIMUMAB
     Indication: CROHN^S DISEASE
     Dosage: 160MGX1, THEN 80MG 2 WEEKS LAT  GIVEN INTO/UNDER THE SKIN
     Route: 058
     Dates: start: 20150428, end: 20150526
  9. VITAMIN D [Concomitant]
     Active Substance: CHOLECALCIFEROL

REACTIONS (3)
  - Cardiomyopathy [None]
  - Cardiac arrest [None]
  - Hypokalaemia [None]

NARRATIVE: CASE EVENT DATE: 20150602
